FAERS Safety Report 17718389 (Version 1)
Quarter: 2020Q2

REPORT INFORMATION
  Report Type: Spontaneous
  Country: BR (occurrence: BR)
  Receive Date: 20200428
  Receipt Date: 20200428
  Transmission Date: 20200714
  Serious: Yes (Other)
  Sender: FDA-Public Use
  Company Number: NVSC2020BR111998

PATIENT
  Sex: Female

DRUGS (1)
  1. TRILEPTAL [Suspect]
     Active Substance: OXCARBAZEPINE
     Indication: PRODUCT USED FOR UNKNOWN INDICATION
     Dosage: 900 MG, QD (600 MG IN THE MORNING AND 300 MG IN THE NIGHT, SINCE 6 YEARS)
     Route: 065

REACTIONS (2)
  - Appendix cancer [Unknown]
  - Neuroendocrine tumour [Unknown]
